FAERS Safety Report 8852185 (Version 1)
Quarter: 2012Q4

REPORT INFORMATION
  Report Type: 
  Country: HU (occurrence: HU)
  Receive Date: 20121022
  Receipt Date: 20121022
  Transmission Date: 20130627
  Serious: Yes (Other)
  Sender: FDA-Public Use
  Company Number: HU-ASTRAZENECA-2012SE78772

PATIENT
  Age: 62 Year
  Sex: Female

DRUGS (1)
  1. SYMBICORT [Suspect]
     Indication: OBSTRUCTIVE AIRWAYS DISORDER
     Route: 055

REACTIONS (1)
  - Sensitivity of teeth [Recovered/Resolved]
